FAERS Safety Report 14277374 (Version 1)
Quarter: 2017Q4

REPORT INFORMATION
  Report Type: Spontaneous
  Country: GB (occurrence: GB)
  Receive Date: 20171211
  Receipt Date: 20171211
  Transmission Date: 20180321
  Serious: Yes (Other)
  Sender: FDA-Public Use
  Company Number: GB-OTSUKA-DJ20083813

PATIENT

DRUGS (8)
  1. RISPERIDONE. [Concomitant]
     Active Substance: RISPERIDONE
     Indication: ABNORMAL BEHAVIOUR
     Dosage: 1.25 MG, QD
     Route: 048
     Dates: start: 20070719, end: 20071214
  2. CHOLESTEROL MEDICATION [Concomitant]
     Active Substance: UNSPECIFIED INGREDIENT
     Indication: INTELLECTUAL DISABILITY
  3. SIMVASTATIN. [Concomitant]
     Active Substance: SIMVASTATIN
     Indication: MULTIPLE CONGENITAL ABNORMALITIES
     Route: 048
  4. SIMVASTATIN. [Concomitant]
     Active Substance: SIMVASTATIN
     Indication: INTELLECTUAL DISABILITY
  5. RISPERIDONE. [Concomitant]
     Active Substance: RISPERIDONE
     Indication: ABNORMAL BEHAVIOUR
     Route: 048
     Dates: start: 20070719, end: 20071214
  6. MELATONIN [Concomitant]
     Active Substance: MELATONIN
     Indication: SLEEP DISORDER
     Route: 048
     Dates: start: 20071214
  7. CHOLESTEROL MEDICATION [Concomitant]
     Active Substance: UNSPECIFIED INGREDIENT
     Indication: MULTIPLE CONGENITAL ABNORMALITIES
     Route: 048
  8. ABILIFY [Suspect]
     Active Substance: ARIPIPRAZOLE
     Indication: ABNORMAL BEHAVIOUR
     Route: 048
     Dates: start: 20071115, end: 20081007

REACTIONS (2)
  - Weight increased [Not Recovered/Not Resolved]
  - Gynaecomastia [Not Recovered/Not Resolved]
